FAERS Safety Report 22824636 (Version 2)
Quarter: 2023Q4

REPORT INFORMATION
  Report Type: Spontaneous
  Country: US (occurrence: US)
  Receive Date: 20230815
  Receipt Date: 20231109
  Transmission Date: 20240109
  Serious: No
  Sender: FDA-Public Use
  Company Number: US-ANIPHARMA-2023-US-014064

PATIENT
  Age: 34 Year
  Sex: Female

DRUGS (1)
  1. CORTICOTROPIN [Suspect]
     Active Substance: CORTICOTROPIN
     Indication: Rheumatoid arthritis
     Dosage: INJECT 80 UNITS (1ML) SUBCUTANEOUSLY THREE TIMES WEEKLY AS DIRECTED
     Route: 058
     Dates: start: 202303, end: 20230919

REACTIONS (6)
  - Inappropriate schedule of product administration [Recovered/Resolved]
  - Contraindicated product administered [Recovered/Resolved]
  - Weight increased [Not Recovered/Not Resolved]
  - Cushingoid [Not Recovered/Not Resolved]
  - Surgery [Unknown]
  - Procedural pain [Unknown]
